FAERS Safety Report 9565807 (Version 1)
Quarter: 2013Q3

REPORT INFORMATION
  Report Type: Spontaneous
  Country: US (occurrence: US)
  Receive Date: 20130930
  Receipt Date: 20130930
  Transmission Date: 20140515
  Serious: No
  Sender: FDA-Public Use
  Company Number: US-TEVA-434844USA

PATIENT
  Age: 50 Year
  Sex: Female
  Weight: 73.55 kg

DRUGS (4)
  1. FENTORA [Suspect]
     Indication: PAIN
     Dates: start: 201307
  2. PERCOCET [Concomitant]
     Indication: PAIN
  3. EXALGO [Concomitant]
     Indication: PAIN
  4. AMBIEN [Concomitant]
     Indication: SLEEP DISORDER

REACTIONS (2)
  - Therapeutic response unexpected [Unknown]
  - Off label use [Unknown]
